FAERS Safety Report 12723862 (Version 2)
Quarter: 2017Q2

REPORT INFORMATION
  Report Type: Spontaneous
  Country: FR (occurrence: FR)
  Receive Date: 20160908
  Receipt Date: 20170412
  Transmission Date: 20170830
  Serious: Yes (Other)
  Sender: FDA-Public Use
  Company Number: FR-SA-2016SA161306

PATIENT
  Age: 40 Year
  Sex: Male
  Weight: 82 kg

DRUGS (2)
  1. SEROPLEX [Concomitant]
     Active Substance: ESCITALOPRAM OXALATE
     Indication: DEPRESSION
     Route: 048
     Dates: start: 2006
  2. AUBAGIO [Suspect]
     Active Substance: TERIFLUNOMIDE
     Indication: MULTIPLE SCLEROSIS
     Route: 048
     Dates: start: 20150108

REACTIONS (2)
  - Diarrhoea [Recovering/Resolving]
  - Intestinal haemorrhage [Unknown]

NARRATIVE: CASE EVENT DATE: 20150108
